FAERS Safety Report 21630379 (Version 6)
Quarter: 2024Q3

REPORT INFORMATION
  Report Type: Spontaneous
  Country: JP (occurrence: JP)
  Receive Date: 20221122
  Receipt Date: 20240926
  Transmission Date: 20241017
  Serious: Yes (Other)
  Sender: LUNDBECK
  Company Number: JP-SA-2022SA465614

PATIENT

DRUGS (23)
  1. SABRIL [Suspect]
     Active Substance: VIGABATRIN
     Indication: Infantile spasms
     Dosage: 135 MG, BID
     Route: 048
     Dates: start: 20171030, end: 20171103
  2. SABRIL [Suspect]
     Active Substance: VIGABATRIN
     Dosage: 270 MG, BID
     Route: 048
     Dates: start: 20171104, end: 20171108
  3. SABRIL [Suspect]
     Active Substance: VIGABATRIN
     Dosage: 400 MG, BID
     Route: 048
     Dates: start: 20171109, end: 20171113
  4. SABRIL [Suspect]
     Active Substance: VIGABATRIN
     Dosage: 540 MG, BID
     Route: 048
     Dates: start: 20171114, end: 20171118
  5. SABRIL [Suspect]
     Active Substance: VIGABATRIN
     Dosage: 675 MG, BID
     Route: 048
     Dates: start: 20171119, end: 20171123
  6. SABRIL [Suspect]
     Active Substance: VIGABATRIN
     Dosage: 550 MG, BID
     Route: 048
     Dates: start: 20171124, end: 20171202
  7. SABRIL [Suspect]
     Active Substance: VIGABATRIN
     Dosage: 450 MG, BID
     Route: 048
     Dates: start: 20171203, end: 20220325
  8. SABRIL [Suspect]
     Active Substance: VIGABATRIN
     Dosage: 350 MG, BID
     Route: 048
     Dates: start: 20220326, end: 20220902
  9. SABRIL [Suspect]
     Active Substance: VIGABATRIN
     Dosage: 250 MG, BID
     Route: 048
     Dates: start: 20220903
  10. VALPROATE SODIUM [Concomitant]
     Active Substance: VALPROATE SODIUM
     Indication: Infantile spasms
     Dosage: DAILY DOSE: 360 MG
     Route: 048
     Dates: start: 201709, end: 20181213
  11. VALPROATE SODIUM [Concomitant]
     Active Substance: VALPROATE SODIUM
     Dosage: DAILY DOSE: 330 MG
     Route: 048
     Dates: start: 20181214
  12. MAGNESIUM OXIDE [Concomitant]
     Active Substance: MAGNESIUM OXIDE
     Indication: Constipation
     Dosage: DAILY DOSE: 0.4 G
     Route: 048
     Dates: end: 20190719
  13. MAGNESIUM OXIDE [Concomitant]
     Active Substance: MAGNESIUM OXIDE
     Dosage: DAILY DOSE: 0.4 G
     Route: 048
     Dates: end: 201909
  14. LEVOCARNITINE [Concomitant]
     Active Substance: LEVOCARNITINE
     Indication: Prophylaxis
     Dosage: DAILY DOSE: 2
     Route: 048
     Dates: end: 20181213
  15. LEVOCARNITINE [Concomitant]
     Active Substance: LEVOCARNITINE
     Indication: Infantile spasms
     Dosage: DAILY DOSE: 1 ML
     Route: 048
     Dates: start: 20181214
  16. VARICELLA-ZOSTER VIRUS STRAIN OKA/MERCK LIVE ANTIGEN [Concomitant]
     Active Substance: VARICELLA-ZOSTER VIRUS STRAIN OKA/MERCK LIVE ANTIGEN
     Indication: Immunisation
     Dosage: DAILY DOSE: 0.5 ML
     Route: 058
     Dates: start: 20191021, end: 20191021
  17. TAURINE [Concomitant]
     Active Substance: TAURINE
     Indication: Prophylaxis
     Dosage: DAILY DOSE: 0.4 G
     Route: 048
     Dates: start: 20190620
  18. EVEROLIMUS [Concomitant]
     Active Substance: EVEROLIMUS
     Indication: Infantile spasms
     Dosage: DAILY DOSE: 1 MG
     Route: 048
     Dates: start: 20200713, end: 20201114
  19. EVEROLIMUS [Concomitant]
     Active Substance: EVEROLIMUS
     Dosage: DAILY DOSE: 1.5 MG
     Route: 048
     Dates: start: 20201115
  20. EVEROLIMUS [Concomitant]
     Active Substance: EVEROLIMUS
     Dosage: DAILY DOSE: 2 MG
     Route: 048
     Dates: start: 20201219
  21. LEVETIRACETAM [Concomitant]
     Active Substance: LEVETIRACETAM
     Indication: Partial seizures
     Dosage: DAILY DOSE: 70 MG
     Route: 048
     Dates: start: 20190313, end: 20190619
  22. LEVETIRACETAM [Concomitant]
     Active Substance: LEVETIRACETAM
     Indication: Infantile spasms
     Dosage: DAILY DOSE: 180 MG
     Route: 048
     Dates: start: 20190620, end: 20191218
  23. LEVETIRACETAM [Concomitant]
     Active Substance: LEVETIRACETAM
     Dosage: DAILY DOSE: 200 MG
     Route: 048
     Dates: start: 20191219

REACTIONS (7)
  - Partial seizures [Recovering/Resolving]
  - Condition aggravated [Recovering/Resolving]
  - Retinogram abnormal [Recovering/Resolving]
  - Status epilepticus [Recovered/Resolved]
  - Retinogram abnormal [Recovering/Resolving]
  - Exanthema subitum [Recovering/Resolving]
  - Alanine aminotransferase decreased [Recovered/Resolved]

NARRATIVE: CASE EVENT DATE: 20190205
